FAERS Safety Report 15013333 (Version 10)
Quarter: 2019Q4

REPORT INFORMATION
  Report Type: Report from Study
  Country: US (occurrence: US)
  Receive Date: 20180614
  Receipt Date: 20191002
  Transmission Date: 20200122
  Serious: Yes (Hospitalization, Disabling)
  Sender: FDA-Public Use
  Company Number: US-ACTELION-A-NJ2018-169721

PATIENT
  Age: 4 Month
  Sex: Male
  Weight: 12.25 kg

DRUGS (29)
  1. FUROSEMIDE. [Concomitant]
     Active Substance: FUROSEMIDE
     Dosage: 15 MG, TID
     Route: 049
     Dates: start: 20170921
  2. NYSTATIN. [Concomitant]
     Active Substance: NYSTATIN
  3. PEDIASURE [Concomitant]
     Active Substance: VITAMINS
  4. POTASSIUM CHLORIDE. [Concomitant]
     Active Substance: POTASSIUM CHLORIDE
     Indication: CONSTIPATION
     Dosage: 13 ML, PRN
  5. REMODULIN [Suspect]
     Active Substance: TREPROSTINIL
     Indication: PRODUCT USED FOR UNKNOWN INDICATION
     Dosage: 50 MG/KG, PER MIN
     Route: 058
     Dates: start: 20171102
  6. GABAPENTIN. [Concomitant]
     Active Substance: GABAPENTIN
     Dosage: 250 MG/5ML
  7. CALCIUM CARBONATE. [Concomitant]
     Active Substance: CALCIUM CARBONATE
  8. OXYGEN. [Concomitant]
     Active Substance: OXYGEN
     Dosage: 1.5 L
  9. ACETAMINOPHEN. [Concomitant]
     Active Substance: ACETAMINOPHEN
  10. TREPROSTINIL. [Concomitant]
     Active Substance: TREPROSTINIL
     Dosage: 50 NG/KG, PER MIN
     Route: 042
     Dates: start: 20171102
  11. CHLOROTHIAZIDE. [Concomitant]
     Active Substance: CHLOROTHIAZIDE
     Dosage: 175 MG, BID
     Dates: start: 20170921
  12. SPIRONOLACTONE. [Concomitant]
     Active Substance: SPIRONOLACTONE
     Dosage: 17.5 MG, BID
     Dates: start: 20171002
  13. CLOPIDOGREL [Concomitant]
     Active Substance: CLOPIDOGREL BISULFATE
     Dosage: 1.5 MG, QD
     Dates: start: 20180205
  14. IBUPROFEN. [Concomitant]
     Active Substance: IBUPROFEN
  15. DOCUSATE SODIUM. [Concomitant]
     Active Substance: DOCUSATE SODIUM
  16. SILDENAFIL. [Concomitant]
     Active Substance: SILDENAFIL
     Dosage: 20 MG, TID
     Route: 048
     Dates: start: 20171018
  17. DIGOXIN. [Concomitant]
     Active Substance: DIGOXIN
     Dosage: 40 MG, BID
  18. BOSENTAN TABLET 32 MG PED US [Suspect]
     Active Substance: BOSENTAN
     Indication: PULMONARY ARTERIAL HYPERTENSION
     Dosage: 16 MG, BID VIA GASTRIC TUBE
     Route: 049
     Dates: start: 20180107
  19. CETIRIZINE [Concomitant]
     Active Substance: CETIRIZINE HYDROCHLORIDE
  20. METOCLOPRAMIDE. [Concomitant]
     Active Substance: METOCLOPRAMIDE
  21. MORPHINE [Concomitant]
     Active Substance: MORPHINE
     Dosage: 2 MG/ML, Q4HRS
  22. ALBUTEROL. [Concomitant]
     Active Substance: ALBUTEROL
  23. REMODULIN [Suspect]
     Active Substance: TREPROSTINIL
     Dosage: 38-54NG/KG/MIN
     Route: 058
  24. ASPIRIN. [Concomitant]
     Active Substance: ASPIRIN
     Dosage: 20.25 MG, QD
     Dates: start: 20170928
  25. ONDANSETRON [Concomitant]
     Active Substance: ONDANSETRON
     Indication: NAUSEA
     Dosage: 1.3 ML, PRN
     Route: 049
  26. BOSENTAN TABLET 32 MG PED US [Suspect]
     Active Substance: BOSENTAN
     Dosage: 5 MG, BID
     Route: 048
     Dates: start: 20171024, end: 20180106
  27. SPIRONOLACTONE. [Concomitant]
     Active Substance: SPIRONOLACTONE
     Dosage: 20 MG, BID
     Route: 049
  28. DIGOXIN. [Concomitant]
     Active Substance: DIGOXIN
     Dosage: 40 MCG, BID
     Route: 049
  29. ONDANSETRON [Concomitant]
     Active Substance: ONDANSETRON
     Indication: VOMITING

REACTIONS (17)
  - Infection [Recovered/Resolved]
  - White blood cell count increased [Unknown]
  - Erythema [Not Recovered/Not Resolved]
  - Bacteraemia [Recovered/Resolved]
  - Viral infection [Unknown]
  - Pyrexia [Recovered/Resolved]
  - Serratia infection [Recovered/Resolved]
  - Unevaluable event [Unknown]
  - Complication associated with device [Recovered/Resolved]
  - Vascular device infection [Recovered/Resolved]
  - Flushing [Not Recovered/Not Resolved]
  - Bloody discharge [Recovered/Resolved]
  - Hypoxia [Recovered/Resolved]
  - Pulmonary arterial hypertension [Recovering/Resolving]
  - Oxygen consumption increased [Recovered/Resolved]
  - Venous angioplasty [Unknown]
  - Gastrointestinal tube insertion [Recovered/Resolved]

NARRATIVE: CASE EVENT DATE: 20171024
